FAERS Safety Report 10241244 (Version 1)
Quarter: 2014Q2

REPORT INFORMATION
  Report Type: Spontaneous
  Country: US (occurrence: US)
  Receive Date: 20140617
  Receipt Date: 20140617
  Transmission Date: 20141212
  Serious: Yes (Disabling, Other)
  Sender: FDA-Public Use
  Company Number: US-PFIZER INC-2014164492

PATIENT
  Sex: Female

DRUGS (3)
  1. GEODON [Suspect]
     Dosage: UNK
  2. SEROQUEL [Suspect]
     Dosage: UNK
  3. REMERON [Suspect]
     Dosage: UNK

REACTIONS (5)
  - Toxic shock syndrome [Unknown]
  - Convulsion [Unknown]
  - Muscle twitching [Unknown]
  - Eye disorder [Unknown]
  - Dysarthria [Unknown]
